FAERS Safety Report 7262645-3 (Version None)
Quarter: 2011Q1

REPORT INFORMATION
  Report Type: 
  Country: None (occurrence: None)
  Receive Date: 20110130
  Receipt Date: 20100924
  Transmission Date: 20110831
  Serious: No
  Sender: FDA-Public Use
  Company Number: US-ABBOTT-10P-163-0673498-00

PATIENT
  Sex: Female
  Weight: 114.41 kg

DRUGS (7)
  1. FOLIC ACID [Concomitant]
     Indication: VITAMIN SUPPLEMENTATION
  2. METHOTREXATE [Concomitant]
     Indication: RHEUMATOID ARTHRITIS
  3. AMBIEN [Concomitant]
     Indication: INSOMNIA
  4. PROZAC [Concomitant]
     Indication: DEPRESSION
     Dates: start: 20080101
  5. HUMIRA [Suspect]
     Indication: RHEUMATOID ARTHRITIS
  6. RESTORIL [Concomitant]
     Indication: PRODUCT USED FOR UNKNOWN INDICATION
  7. HUMIRA [Suspect]
     Indication: PSORIATIC ARTHROPATHY
     Route: 058
     Dates: start: 20100907

REACTIONS (1)
  - SINUSITIS [None]
